FAERS Safety Report 4970282-6 (Version None)
Quarter: 2006Q1

REPORT INFORMATION
  Report Type: 
  Country: None (occurrence: None)
  Receive Date: 20060331
  Receipt Date: 20060105
  Transmission Date: 20060701
  Serious: Yes (Hospitalization)
  Sender: FDA-Public Use
  Company Number: 2006BH000278

PATIENT
  Age: 78 Year
  Sex: Female
  Weight: 54 kg

DRUGS (2)
  1. ENDOBULIN/IVEEGAM S/D (IMMUNOGLOBULIN HUMAN NORMAL) [Suspect]
     Indication: ACQUIRED HAEMOPHILIA
     Dosage: 30 MG; EVERY DAY; IV
     Route: 042
     Dates: start: 20051216, end: 20051218
  2. ALDACTAZINE [Concomitant]

REACTIONS (4)
  - BLOOD CHLORIDE DECREASED [None]
  - BLOOD POTASSIUM DECREASED [None]
  - HYPONATRAEMIA [None]
  - PROTEIN TOTAL INCREASED [None]
